FAERS Safety Report 8215883-7 (Version None)
Quarter: 2012Q1

REPORT INFORMATION
  Report Type: 
  Country: None (occurrence: None)
  Receive Date: 20120316
  Receipt Date: 20120312
  Transmission Date: 20120608
  Serious: Yes (Hospitalization, Other)
  Sender: FDA-Public Use
  Company Number: US-MERCK-1110USA03834

PATIENT
  Age: 69 Year
  Sex: Female
  Weight: 91 kg

DRUGS (6)
  1. CELEBREX [Concomitant]
     Route: 048
  2. NEXIUM [Concomitant]
     Indication: GASTROOESOPHAGEAL REFLUX DISEASE
     Route: 048
     Dates: start: 20010101
  3. CALCIUM (UNSPECIFIED) [Concomitant]
     Route: 048
     Dates: start: 20080410
  4. FOSAMAX [Suspect]
     Indication: OSTEOPOROSIS POSTMENOPAUSAL
     Route: 048
     Dates: start: 20020101, end: 20080508
  5. FOSAMAX [Suspect]
     Route: 048
     Dates: start: 20081101, end: 20091001
  6. VITAMIN D (UNSPECIFIED) [Concomitant]
     Route: 048
     Dates: start: 20080410

REACTIONS (32)
  - CEREBROVASCULAR ACCIDENT [None]
  - DIABETES MELLITUS [None]
  - LUMBAR SPINAL STENOSIS [None]
  - PAIN IN EXTREMITY [None]
  - FATIGUE [None]
  - FEMUR FRACTURE [None]
  - CLOSTRIDIUM DIFFICILE COLITIS [None]
  - MACULAR DEGENERATION [None]
  - HIATUS HERNIA [None]
  - MYALGIA [None]
  - FOOT FRACTURE [None]
  - BONE PAIN [None]
  - VITAMIN D DEFICIENCY [None]
  - RHINITIS ALLERGIC [None]
  - BLOOD POTASSIUM DECREASED [None]
  - STRESS FRACTURE [None]
  - LOWER LIMB FRACTURE [None]
  - INTERVERTEBRAL DISC PROTRUSION [None]
  - TOOTH DISORDER [None]
  - FRACTURED COCCYX [None]
  - LOW TURNOVER OSTEOPATHY [None]
  - TEMPOROMANDIBULAR JOINT SYNDROME [None]
  - SINUSITIS [None]
  - ARTHRITIS [None]
  - DEPRESSION [None]
  - ANAEMIA [None]
  - OSTEOARTHRITIS [None]
  - NODAL OSTEOARTHRITIS [None]
  - FOOT DEFORMITY [None]
  - JOINT EFFUSION [None]
  - MUSCLE STRAIN [None]
  - INTERVERTEBRAL DISC DEGENERATION [None]
